FAERS Safety Report 6192969-2 (Version None)
Quarter: 2009Q2

REPORT INFORMATION
  Report Type: 
  Country: None (occurrence: None)
  Receive Date: 20090518
  Receipt Date: 20090507
  Transmission Date: 20091009
  Serious: Yes (Hospitalization)
  Sender: FDA-Public Use
  Company Number: US-BIOGENIDEC-2009BI012128

PATIENT
  Sex: Female

DRUGS (1)
  1. AVONEX [Suspect]
     Indication: MULTIPLE SCLEROSIS
     Route: 030
     Dates: start: 20070923

REACTIONS (10)
  - ABASIA [None]
  - ADENOMYOSIS [None]
  - ANAEMIA [None]
  - DYSMENORRHOEA [None]
  - FALLOPIAN TUBE CYST [None]
  - MENORRHAGIA [None]
  - PAROVARIAN CYST [None]
  - PELVIC MASS [None]
  - PELVIC PAIN [None]
  - UTERINE HAEMORRHAGE [None]
